FAERS Safety Report 8598978-8 (Version None)
Quarter: 2012Q3

REPORT INFORMATION
  Report Type: 
  Country: None (occurrence: None)
  Receive Date: 20120816
  Receipt Date: 19940405
  Transmission Date: 20120928
  Serious: Yes (Hospitalization, Other)
  Sender: FDA-Public Use
  Company Number: US-ROCHE-1101370

PATIENT
  Age: 35 Year
  Sex: Male

DRUGS (5)
  1. INAPSINE [Concomitant]
     Route: 065
  2. TORADOL [Concomitant]
     Route: 065
  3. ACTIVASE [Suspect]
     Indication: ACUTE MYOCARDIAL INFARCTION
     Route: 065
  4. NITROGLYCERIN [Concomitant]
     Route: 065
  5. NITROGLYCERIN [Concomitant]
     Route: 065

REACTIONS (2)
  - ELECTROCARDIOGRAM ST SEGMENT ELEVATION [None]
  - BLOOD CREATINE PHOSPHOKINASE INCREASED [None]
